FAERS Safety Report 7764213-3 (Version None)
Quarter: 2011Q3

REPORT INFORMATION
  Report Type: 
  Country: None (occurrence: None)
  Receive Date: 20110921
  Receipt Date: 20110909
  Transmission Date: 20111222
  Serious: Yes (Hospitalization)
  Sender: FDA-Public Use
  Company Number: US-JNJFOC-20110905578

PATIENT
  Age: 10 Year
  Sex: Male

DRUGS (3)
  1. CHILDREN'S TYLENOL PLUS COLD [Suspect]
     Indication: INFLUENZA
     Route: 048
  2. CONCENTRATED TYLENOL INFANT DROPS [Suspect]
     Route: 048
  3. CONCENTRATED TYLENOL INFANT DROPS [Suspect]
     Indication: HEADACHE
     Route: 048

REACTIONS (2)
  - APLASTIC ANAEMIA [None]
  - RENAL INJURY [None]
